FAERS Safety Report 6102988-X (Version None)
Quarter: 2009Q1

REPORT INFORMATION
  Report Type: 
  Country: None (occurrence: None)
  Receive Date: 20090305
  Receipt Date: 20090224
  Transmission Date: 20090719
  Serious: Yes (Hospitalization)
  Sender: FDA-Public Use
  Company Number: PHHY2009GT06896

PATIENT
  Age: 76 Year
  Sex: Male

DRUGS (8)
  1. COMTAN [Suspect]
     Indication: PARKINSON'S DISEASE
     Dosage: 200 MG/DAY
     Route: 048
     Dates: start: 20050101
  2. METOPROLOL SUCCINATE [Concomitant]
     Dosage: 2 TABLET/DAY
  3. INDAPAMIDE [Concomitant]
     Dosage: 2 TABLET PER DAY
     Route: 048
  4. MEDOCOR [Concomitant]
     Dosage: 2 TABLET BID
     Route: 048
  5. PLAVIX [Concomitant]
     Dosage: 75 MG/DAY
     Route: 048
  6. JUMEX [Concomitant]
     Dosage: 2 TABLET/DAY
     Route: 048
  7. SINEMET [Concomitant]
     Dosage: HALF TABLET BID
     Route: 048
  8. AKINETON [Concomitant]
     Dosage: HALF A TAB BID
     Route: 048

REACTIONS (1)
  - ABNORMAL BEHAVIOUR [None]
